FAERS Safety Report 6340519-X (Version None)
Quarter: 2009Q3

REPORT INFORMATION
  Report Type: 
  Country: None (occurrence: None)
  Receive Date: 20090904
  Receipt Date: 20090831
  Transmission Date: 20100115
  Serious: Yes (Death, Other)
  Sender: FDA-Public Use
  Company Number: US-TEVA-207739USA

PATIENT
  Age: 28 Year
  Sex: Male

DRUGS (1)
  1. AMPHETAMINES [Suspect]
     Indication: ATTENTION DEFICIT/HYPERACTIVITY DISORDER
     Route: 048

REACTIONS (1)
  - INTRACRANIAL ANEURYSM [None]
